FAERS Safety Report 21227706 (Version 1)
Quarter: 2022Q3

REPORT INFORMATION
  Report Type: Spontaneous
  Country: US (occurrence: None)
  Receive Date: 20220817
  Receipt Date: 20220817
  Transmission Date: 20221027
  Serious: Yes (Hospitalization)
  Sender: FDA-Public Use
  Company Number: None

PATIENT
  Sex: Female

DRUGS (1)
  1. SPRAVATO [Suspect]
     Active Substance: ESKETAMINE
     Indication: Obsessive-compulsive disorder
     Dosage: FREQUENCY : AS DIRECTED;?I\DMINISTER 84 MG INTRANASALLY TWICE WEEKLY?
     Route: 045
     Dates: start: 20220713

REACTIONS (1)
  - Hospitalisation [None]
